FAERS Safety Report 15093609 (Version 1)
Quarter: 2018Q2

REPORT INFORMATION
  Report Type: Spontaneous
  Country: GB (occurrence: GB)
  Receive Date: 20180629
  Receipt Date: 20180629
  Transmission Date: 20180711
  Serious: Yes (Other)
  Sender: FDA-Public Use
  Company Number: PHHY2018GB032579

PATIENT
  Age: 68 Year
  Sex: Male

DRUGS (2)
  1. JANUVIA [Suspect]
     Active Substance: SITAGLIPTIN PHOSPHATE
     Indication: TYPE 2 DIABETES MELLITUS
     Dosage: UNK
     Route: 048
  2. METFORMIN [Suspect]
     Active Substance: METFORMIN HYDROCHLORIDE
     Indication: TYPE 2 DIABETES MELLITUS
     Route: 065

REACTIONS (18)
  - Urinary tract infection [Unknown]
  - Polyuria [Unknown]
  - Lethargy [Unknown]
  - Adverse event [Unknown]
  - Headache [Unknown]
  - Fatigue [Unknown]
  - Feeling jittery [Unknown]
  - Mood altered [Unknown]
  - Asthenia [Unknown]
  - Nausea [Unknown]
  - Disturbance in attention [Unknown]
  - Adverse drug reaction [Unknown]
  - Confusional state [Unknown]
  - Nervousness [Unknown]
  - Loss of consciousness [Unknown]
  - Depressed mood [Unknown]
  - Heart rate increased [Unknown]
  - Malaise [Unknown]
